FAERS Safety Report 6531386-X (Version None)
Quarter: 2010Q1

REPORT INFORMATION
  Report Type: 
  Country: None (occurrence: None)
  Receive Date: 20100108
  Receipt Date: 20091102
  Transmission Date: 20100710
  Serious: No
  Sender: FDA-Public Use
  Company Number: A0812982A

PATIENT
  Age: 62 Year
  Sex: Female

DRUGS (10)
  1. TYKERB [Suspect]
     Indication: BREAST CANCER
     Dosage: 500MG FIVE TIMES PER DAY
     Route: 048
     Dates: start: 20091014, end: 20091024
  2. XELODA [Concomitant]
     Dates: start: 20091014
  3. XANAX [Concomitant]
  4. LISINOPRIL [Concomitant]
  5. LEXAPRO [Concomitant]
  6. B12 COMPLEX [Concomitant]
  7. MULTI-VITAMIN [Concomitant]
  8. ANTIBIOTIC [Concomitant]
     Indication: EYE OPERATION
     Dates: start: 20091016
  9. HEART MEDICATION [Concomitant]
  10. DIURETIC [Concomitant]

REACTIONS (5)
  - DECREASED APPETITE [None]
  - DIARRHOEA [None]
  - DYSKINESIA [None]
  - FATIGUE [None]
  - WEIGHT DECREASED [None]
